FAERS Safety Report 18487299 (Version 2)
Quarter: 2021Q1

REPORT INFORMATION
  Report Type: Spontaneous
  Country: BR (occurrence: BR)
  Receive Date: 20201110
  Receipt Date: 20210105
  Transmission Date: 20210419
  Serious: Yes (Life-Threatening, Other)
  Sender: FDA-Public Use
  Company Number: BR-AMERICAN REGENT INC-2020002360

PATIENT
  Age: 89 Year
  Sex: Male

DRUGS (1)
  1. VENOFER [Suspect]
     Active Substance: IRON SUCROSE
     Indication: BLOOD IRON DECREASED
     Dosage: 2 VIALS IN 0.5 VIAL OF PHYSIOLOGICAL SALINE SOLUTION
     Dates: start: 2019, end: 2020

REACTIONS (2)
  - Faeces discoloured [Unknown]
  - Gastric ulcer haemorrhage [Unknown]

NARRATIVE: CASE EVENT DATE: 202009
